FAERS Safety Report 19455728 (Version 1)
Quarter: 2021Q2

REPORT INFORMATION
  Report Type: Spontaneous
  Country: IN (occurrence: IN)
  Receive Date: 20210624
  Receipt Date: 20210624
  Transmission Date: 20210717
  Serious: Yes (Other)
  Sender: FDA-Public Use
  Company Number: IN-HETERO-HET2021IN01231

PATIENT
  Age: 22 Year
  Sex: Male

DRUGS (4)
  1. VANCOMYCIN [Concomitant]
     Active Substance: VANCOMYCIN
     Indication: LIVER ABSCESS
     Dosage: UNK
     Route: 065
  2. COTRIMOXAZOLE [Concomitant]
     Active Substance: SULFAMETHOXAZOLE\TRIMETHOPRIM
     Indication: PROPHYLAXIS
     Dosage: UNK
     Route: 065
  3. LINEZOLID. [Suspect]
     Active Substance: LINEZOLID
     Indication: LIVER ABSCESS
     Dosage: 600 MG, B.I.D.
     Route: 048
  4. ITRACONAZOLE EG [Interacting]
     Active Substance: ITRACONAZOLE
     Indication: PROPHYLAXIS
     Dosage: 200 MG, QD
     Route: 065

REACTIONS (7)
  - Toxicity to various agents [Unknown]
  - Retinal cyst [Recovered/Resolved]
  - Optic neuropathy [Recovered/Resolved]
  - Blood lactic acid increased [Unknown]
  - Mitochondrial toxicity [Unknown]
  - Drug interaction [Unknown]
  - Neuropathy peripheral [Unknown]
